FAERS Safety Report 6023693-4 (Version None)
Quarter: 2008Q4

REPORT INFORMATION
  Report Type: 
  Country: None (occurrence: None)
  Receive Date: 20081226
  Receipt Date: 20081226
  Transmission Date: 20090506
  Serious: No
  Sender: FDA-Public Use
  Company Number: None

PATIENT
  Age: 53 Year
  Sex: Female
  Weight: 81.6475 kg

DRUGS (2)
  1. SEROQUEL [Suspect]
     Dosage: 100 MG 3 TIMES DAILY PO
     Route: 048
     Dates: start: 20010510, end: 20081224
  2. SEROQUEL [Suspect]
     Dosage: 100 MG 3 TIMES DAILY PO
     Route: 048
     Dates: start: 20020510, end: 20081224

REACTIONS (3)
  - BLOOD GLUCOSE INCREASED [None]
  - DIABETES MELLITUS [None]
  - WEIGHT INCREASED [None]
